FAERS Safety Report 21872331 (Version 1)
Quarter: 2023Q1

REPORT INFORMATION
  Report Type: Spontaneous
  Country: IT (occurrence: IT)
  Receive Date: 20230117
  Receipt Date: 20230117
  Transmission Date: 20230418
  Serious: Yes (Other)
  Sender: FDA-Public Use
  Company Number: None

PATIENT
  Age: 62 Year
  Sex: Female

DRUGS (4)
  1. IRINOTECAN [Suspect]
     Active Substance: IRINOTECAN
     Indication: Colon cancer
     Dosage: 259.4 MG?ROA-20045000
     Route: 042
     Dates: start: 20221109
  2. ZALTRAP [Suspect]
     Active Substance: ZIV-AFLIBERCEPT
     Indication: Colon cancer
     Dosage: 224 MG?ROA-20045000
     Route: 042
     Dates: start: 20221109
  3. FLUOROURACIL [Suspect]
     Active Substance: FLUOROURACIL
     Indication: Colon cancer
     Dosage: 3456 MG?ROA-20045000
     Route: 042
     Dates: start: 20221109
  4. LEVOLEUCOVORIN DISODIUM [Concomitant]
     Active Substance: LEVOLEUCOVORIN DISODIUM
     Indication: Product used for unknown indication
     Dosage: 360MG

REACTIONS (3)
  - Hypertension [Recovering/Resolving]
  - Diarrhoea [Recovered/Resolved]
  - Neutropenia [Recovering/Resolving]

NARRATIVE: CASE EVENT DATE: 20221109
